FAERS Safety Report 15753448 (Version 1)
Quarter: 2018Q4

REPORT INFORMATION
  Report Type: Spontaneous
  Country: US (occurrence: US)
  Receive Date: 20181222
  Receipt Date: 20181222
  Transmission Date: 20190205
  Serious: No
  Sender: FDA-Public Use
  Company Number: US-MALLINCKRODT-T201801892

PATIENT
  Sex: Male
  Weight: 102 kg

DRUGS (2)
  1. OXYCODONE [Concomitant]
     Active Substance: OXYCODONE
     Indication: BREAKTHROUGH PAIN
     Dosage: 10 MG
  2. FENTANYL TRANSDERMAL SYSTEM [Suspect]
     Active Substance: FENTANYL
     Indication: PAIN
     Dosage: 100 MCG/HR ONE PATCH EVERY 2 DAYS
     Route: 062

REACTIONS (6)
  - Hyperhidrosis [Unknown]
  - Hot flush [Unknown]
  - Muscle spasms [Unknown]
  - Dyskinesia [Unknown]
  - Dry mouth [Unknown]
  - Incorrect product administration duration [Unknown]
